FAERS Safety Report 10725856 (Version 1)
Quarter: 2015Q1

REPORT INFORMATION
  Report Type: Spontaneous
  Country: FI (occurrence: None)
  Receive Date: 20150116
  Receipt Date: 20150116
  Transmission Date: 20150721
  Serious: Yes (Hospitalization, Other)
  Sender: FDA-Public Use
  Company Number: FI-ZYDUS-006376

PATIENT
  Age: 14 Year
  Sex: Male

DRUGS (1)
  1. SODIUM VALPROATE [Suspect]
     Active Substance: VALPROATE SODIUM
     Indication: EPILEPSY

REACTIONS (7)
  - Hepatic steatosis [None]
  - Hepatic fibrosis [None]
  - Acute hepatic failure [None]
  - Metabolic encephalopathy [None]
  - Pancreatitis [None]
  - Toxicity to various agents [None]
  - Haemolytic anaemia [None]
